FAERS Safety Report 8309046-4 (Version None)
Quarter: 2012Q2

REPORT INFORMATION
  Report Type: 
  Country: None (occurrence: None)
  Receive Date: 20120424
  Receipt Date: 20120419
  Transmission Date: 20120825
  Serious: Yes (Other)
  Sender: FDA-Public Use
  Company Number: US-ELI_LILLY_AND_COMPANY-US201204007227

PATIENT
  Sex: Female

DRUGS (3)
  1. GLUCAGON [Suspect]
     Dosage: UNK UNK, PRN
     Dates: start: 20080101
  2. LANTUS [Concomitant]
     Dosage: 10 U, UNK
  3. HUMALOG [Suspect]
     Indication: TYPE 1 DIABETES MELLITUS
     Dosage: UNK UNK, PRN
     Dates: start: 19960101

REACTIONS (3)
  - LOSS OF CONSCIOUSNESS [None]
  - EXPIRED DRUG ADMINISTERED [None]
  - WRONG TECHNIQUE IN DRUG USAGE PROCESS [None]
